FAERS Safety Report 9262539 (Version 1)
Quarter: 2013Q2

REPORT INFORMATION
  Report Type: Spontaneous
  Country: US (occurrence: US)
  Receive Date: 20130430
  Receipt Date: 20130430
  Transmission Date: 20140414
  Serious: Yes (Other)
  Sender: FDA-Public Use
  Company Number: US-BAYER-2013-051347

PATIENT
  Age: 62 Year
  Sex: Female

DRUGS (20)
  1. BAYER GENUINE ASPIRIN ORIGINAL STRENGTH [Suspect]
  2. ACCUPRIL [Concomitant]
     Dosage: 5 MG, QD
     Route: 048
  3. ASCORBIC ACID [Concomitant]
     Dosage: 250 MG, BID
     Route: 048
  4. COREG [Concomitant]
     Dosage: 6.25 MG, BID
     Route: 048
  5. VITAMIN D3 [Concomitant]
     Dosage: 5000 U, QD
     Route: 048
  6. VASOTEC [Concomitant]
     Dosage: 0.5 DF, QD
  7. ZETIA [Concomitant]
     Dosage: 10 MG, QD
     Route: 048
  8. DIFLUCAN [Concomitant]
     Dosage: TAKE 1 TABLET NOW; REPEAT IN 2 DAYS
  9. LASIX [Concomitant]
     Indication: HYPERTENSION
     Dosage: 1 DF, QD
     Route: 048
  10. GLUCOTROL [Concomitant]
     Dosage: 1 DF, BID
     Route: 048
  11. GLUCOTROL XL [Concomitant]
     Dosage: 1 DF, QD
  12. APRESOLINE [Concomitant]
     Dosage: 1 DF, BID
     Route: 048
  13. INSULIN GLARGINE [Concomitant]
     Dosage: 78 U, HS
     Route: 058
  14. NIFEREX [Concomitant]
     Dosage: 1 DF, BID
     Route: 048
  15. JANUVIA [Concomitant]
     Dosage: 1 DF, QD
     Route: 048
  16. K-TAB [Concomitant]
     Dosage: 3 DF, QD
     Route: 048
  17. INFLUENZA VACCINE [Concomitant]
     Dosage: UNK
     Dates: start: 20130109
  18. NEURONTIN [Concomitant]
     Dosage: 300 MG, TID
     Route: 048
  19. ZOLOFT [Concomitant]
     Dosage: 50 MG, QHS
     Route: 048
  20. NORVASC [Concomitant]
     Dosage: 5 MG, QD
     Route: 048

REACTIONS (1)
  - Anaphylactic reaction [None]
